FAERS Safety Report 6196220-9 (Version None)
Quarter: 2009Q2

REPORT INFORMATION
  Report Type: 
  Country: None (occurrence: None)
  Receive Date: 20090518
  Receipt Date: 20090513
  Transmission Date: 20091009
  Serious: Yes (Life-Threatening, Disabling)
  Sender: FDA-Public Use
  Company Number: 2009AL003180

PATIENT
  Age: 55 Year
  Sex: Female

DRUGS (4)
  1. VENLAFAXINE HCL [Suspect]
     Indication: ANXIETY
     Dosage: 300 MG; QD; PO
     Route: 048
     Dates: start: 20020101
  2. DIAZEPAM [Concomitant]
  3. ZOPLICONE [Concomitant]
  4. ACETAMINOPHEN W/ CODEINE [Concomitant]

REACTIONS (2)
  - CARDIOMYOPATHY [None]
  - LEFT VENTRICULAR FAILURE [None]
